FAERS Safety Report 10358318 (Version 3)
Quarter: 2014Q4

REPORT INFORMATION
  Report Type: Spontaneous
  Country: US (occurrence: None)
  Receive Date: 20140730
  Receipt Date: 20141114
  Transmission Date: 20150528
  Serious: Yes (Hospitalization)
  Sender: FDA-Public Use
  Company Number: UNT-2014-004380

PATIENT
  Age: 48 Year
  Sex: Female
  Weight: 60 kg

DRUGS (2)
  1. REMODULIN [Suspect]
     Active Substance: TREPROSTINIL
     Indication: PULMONARY ARTERIAL HYPERTENSION
     Dosage: UG/KG
     Route: 058
     Dates: start: 20140708
  2. LETAIRIS [Concomitant]
     Active Substance: AMBRISENTAN

REACTIONS (8)
  - Headache [None]
  - Vomiting [None]
  - Diarrhoea [None]
  - Hypotension [None]
  - Nausea [None]
  - Dry eye [None]
  - Restless legs syndrome [None]
  - Infusion site pain [None]
